FAERS Safety Report 8603605-7 (Version None)
Quarter: 2012Q3

REPORT INFORMATION
  Report Type: 
  Country: None (occurrence: None)
  Receive Date: 20120817
  Receipt Date: 20120807
  Transmission Date: 20120928
  Serious: Yes (Other)
  Sender: FDA-Public Use
  Company Number: US-ROCHE-727253

PATIENT
  Sex: Female
  Weight: 56.7 kg

DRUGS (3)
  1. ACCUTANE [Suspect]
     Indication: ACNE
     Dosage: DOSE:10-60 MG
     Route: 065
     Dates: start: 20010524, end: 20010801
  2. FE SUPPLEMENT [Concomitant]
  3. ACCUTANE [Suspect]
     Route: 065

REACTIONS (9)
  - INFLAMMATORY BOWEL DISEASE [None]
  - GASTROINTESTINAL INJURY [None]
  - MICROCYTIC ANAEMIA [None]
  - HEADACHE [None]
  - UPPER RESPIRATORY TRACT INFECTION [None]
  - LIP DRY [None]
  - COLITIS ULCERATIVE [None]
  - DRY SKIN [None]
  - ATTENTION DEFICIT/HYPERACTIVITY DISORDER [None]
